FAERS Safety Report 14613663 (Version 1)
Quarter: 2018Q1

REPORT INFORMATION
  Report Type: Spontaneous
  Country: US (occurrence: US)
  Receive Date: 20180308
  Receipt Date: 20180308
  Transmission Date: 20180509
  Serious: No
  Sender: FDA-Public Use
  Company Number: US-B.I. PHARMACEUTICALS,INC./RIDGEFIELD-2018-BI-011212

PATIENT
  Age: 57 Year
  Sex: Male

DRUGS (6)
  1. SPIRIVA [Suspect]
     Active Substance: TIOTROPIUM BROMIDE MONOHYDRATE
     Indication: CHRONIC OBSTRUCTIVE PULMONARY DISEASE
     Route: 055
     Dates: start: 20180124, end: 20180207
  2. CRESTOR [Concomitant]
     Active Substance: ROSUVASTATIN CALCIUM
     Indication: BLOOD CHOLESTEROL INCREASED
     Dosage: ONCE DAILY;  FORM STRENGTH: 10MG; FORMULATION: TABLET
     Route: 048
     Dates: start: 2013
  3. TESTOSTERONE. [Concomitant]
     Active Substance: TESTOSTERONE
     Indication: BLOOD TESTOSTERONE DECREASED
     Dosage: ONCE MONTHLY;  FORM STRENGTH: 200 MG/ML; FORMULATION: INTRAMUSCULAR
     Route: 030
     Dates: start: 2014
  4. LEXPRO [Concomitant]
     Indication: OSTEOCHONDROSIS
  5. LEXPRO [Concomitant]
     Indication: DEPRESSION
     Dosage: ONCE DAILY;  FORM STRENGTH: 40MG; FORMULATION: TABLET
     Route: 048
     Dates: start: 1998
  6. XYZAL [Concomitant]
     Active Substance: LEVOCETIRIZINE DIHYDROCHLORIDE
     Indication: PRURITUS
     Dosage: ONCE DAILY;  FORM STRENGTH: 10MG; FORMULATION: TABLET
     Route: 048
     Dates: start: 2014

REACTIONS (2)
  - Depression [Not Recovered/Not Resolved]
  - Osteochondrosis [Not Recovered/Not Resolved]

NARRATIVE: CASE EVENT DATE: 20180125
